FAERS Safety Report 23846757 (Version 1)
Quarter: 2024Q2

REPORT INFORMATION
  Report Type: Spontaneous
  Country: US (occurrence: US)
  Receive Date: 20240513
  Receipt Date: 20240513
  Transmission Date: 20240715
  Serious: No
  Sender: FDA-Public Use
  Company Number: US-PADAGIS-2024PAD00759

PATIENT

DRUGS (2)
  1. TRETINOIN [Suspect]
     Active Substance: TRETINOIN
     Indication: Acne
     Dosage: UNK
     Route: 061
     Dates: start: 2024
  2. TRETINOIN [Suspect]
     Active Substance: TRETINOIN
     Indication: Skin wrinkling

REACTIONS (3)
  - Application site pain [None]
  - Application site erythema [None]
  - Drug ineffective for unapproved indication [Unknown]

NARRATIVE: CASE EVENT DATE: 20240101
